FAERS Safety Report 7472920-5 (Version None)
Quarter: 2011Q2

REPORT INFORMATION
  Report Type: 
  Country: None (occurrence: None)
  Receive Date: 20110511
  Receipt Date: 20110415
  Transmission Date: 20111010
  Serious: Yes (Other)
  Sender: FDA-Public Use
  Company Number: US-SHIRE-ALL1-2011-00706

PATIENT
  Sex: Male
  Weight: 44.444 kg

DRUGS (5)
  1. VYVANSE [Suspect]
     Dosage: 30 MG, 1X/DAY:QD
     Route: 048
     Dates: start: 20100101, end: 20110101
  2. ALLEGRA D 24 HOUR [Concomitant]
     Indication: SEASONAL ALLERGY
     Dosage: UNK MG, 1X/DAY:QD
     Route: 048
  3. VYVANSE [Suspect]
     Indication: ATTENTION DEFICIT/HYPERACTIVITY DISORDER
     Dosage: 20 MG, 1X/DAY:QD
     Route: 048
     Dates: start: 20101001
  4. VYVANSE [Suspect]
     Dosage: 40 MG, 1X/DAY:QD
     Route: 048
     Dates: start: 20110101, end: 20110131
  5. DDAVP [Concomitant]
     Indication: ENURESIS
     Dosage: 0.2 MG, 3X/DAY:TID
     Route: 048
     Dates: end: 20110101

REACTIONS (4)
  - DECREASED APPETITE [None]
  - TIC [None]
  - ABNORMAL LOSS OF WEIGHT [None]
  - REBOUND EFFECT [None]
